FAERS Safety Report 9338674 (Version 1)
Quarter: 2013Q2

REPORT INFORMATION
  Report Type: Spontaneous
  Country: US (occurrence: US)
  Receive Date: 20130610
  Receipt Date: 20130610
  Transmission Date: 20140414
  Serious: No
  Sender: FDA-Public Use
  Company Number: US-BRISTOL-MYERS SQUIBB COMPANY-16624496

PATIENT
  Sex: Female

DRUGS (1)
  1. SUSTIVA TABS 600 MG [Suspect]
     Indication: HIV INFECTION
     Route: 048

REACTIONS (2)
  - Dysphagia [Unknown]
  - Product size issue [Unknown]
